FAERS Safety Report 10504778 (Version 21)
Quarter: 2021Q4

REPORT INFORMATION
  Report Type: Spontaneous
  Country: GB (occurrence: GB)
  Receive Date: 20141008
  Receipt Date: 20211122
  Transmission Date: 20220303
  Serious: Yes (Hospitalization, Other)
  Sender: FDA-Public Use
  Company Number: GB-ROCHE-1198165

PATIENT
  Age: 65 Year
  Sex: Male
  Weight: 94 kg

DRUGS (18)
  1. EMEND [Suspect]
     Active Substance: APREPITANT
     Indication: Gastric cancer
     Dosage: 113 MILLIGRAM (ALSO REPORTED AS DAILY DOSE 113 MG, FREQUENCY UNKNOWN); DATE OF LAST DOSE: 06-MAR-201
     Route: 048
     Dates: start: 20120124, end: 20120306
  2. AVASTIN [Suspect]
     Active Substance: BEVACIZUMAB
     Indication: Gastric cancer
     Dosage: 743 MG (DATE OF MOST RECENT ADMINISTRATION: 06-MAR-2012)
     Route: 042
     Dates: start: 20120124, end: 20120306
  3. AVASTIN [Suspect]
     Active Substance: BEVACIZUMAB
     Dosage: 113 MG
     Route: 042
     Dates: start: 20120124, end: 20120306
  4. CISPLATIN [Suspect]
     Active Substance: CISPLATIN
     Indication: Gastric cancer
     Dosage: 113 MG, UNK
     Route: 042
     Dates: start: 20120124
  5. CISPLATIN [Suspect]
     Active Substance: CISPLATIN
     Indication: Gastric cancer
  6. DEXAMETHASONE [Suspect]
     Active Substance: DEXAMETHASONE
     Indication: Gastric cancer
     Dosage: DATE OF LAST DOSE: 09/MAR/2012
     Route: 048
     Dates: start: 20120124, end: 20120309
  7. DEXAMETHASONE [Suspect]
     Active Substance: DEXAMETHASONE
     Indication: Gastric cancer
  8. EPIRUBICIN HYDROCHLORIDE [Suspect]
     Active Substance: EPIRUBICIN HYDROCHLORIDE
     Indication: Gastric cancer
     Dosage: 95 MG, DATE OF MOST RECENT ADMINISTRATION: 06/MAR/2012
     Route: 042
     Dates: start: 20120124, end: 20120306
  9. EPIRUBICIN HYDROCHLORIDE [Suspect]
     Active Substance: EPIRUBICIN HYDROCHLORIDE
     Indication: Gastric cancer
  10. FUROSEMIDE [Suspect]
     Active Substance: FUROSEMIDE
     Indication: Gastric cancer
     Dosage: DAILY DOSE OF 40 MG (FREQUENCY: NOT REPORTED); DATE OF LAST DOSE: 06-MAR-2012;PREFERRED PRODUCT DESC
     Route: 048
     Dates: start: 20120124, end: 20120306
  11. ONDANSETRON [Suspect]
     Active Substance: ONDANSETRON
     Indication: Gastric cancer
     Dosage: DATE OF LAST DOSE: 09/MAR/2012
     Route: 048
     Dates: start: 20120124, end: 20120309
  12. ONDANSETRON [Suspect]
     Active Substance: ONDANSETRON
     Indication: Gastric cancer
  13. XELODA [Suspect]
     Active Substance: CAPECITABINE
     Indication: Gastric cancer
     Dosage: DATE OF MOST RECENT ADMINISTRATION: 27/MAR/2012; THERAPY END FLAG: DRUG NO LONGER ADMINISTERED
     Route: 048
     Dates: start: 20120124, end: 20120327
  14. XELODA [Suspect]
     Active Substance: CAPECITABINE
     Indication: Gastric cancer
  15. CAPECITABINE [Suspect]
     Active Substance: CAPECITABINE
     Indication: Gastric cancer
     Dosage: UNK
     Route: 048
     Dates: start: 20120124
  16. BEVACIZUMAB [Suspect]
     Active Substance: BEVACIZUMAB
     Indication: Gastric cancer
     Dosage: 743 MILLIGRAM
     Dates: start: 20120124
  17. LISINOPRIL [Concomitant]
     Active Substance: LISINOPRIL
     Indication: Product used for unknown indication
     Dosage: 5 MG, UNK
     Route: 065
     Dates: start: 200705
  18. SIMVASTATIN [Concomitant]
     Active Substance: SIMVASTATIN
     Indication: Product used for unknown indication
     Dosage: 80 MG, UNK
     Route: 048
     Dates: start: 200503

REACTIONS (4)
  - Abdominal sepsis [Recovered/Resolved]
  - Vomiting [Recovered/Resolved]
  - Febrile neutropenia [Recovered/Resolved]
  - Diarrhoea [Recovered/Resolved]

NARRATIVE: CASE EVENT DATE: 20120313
